FAERS Safety Report 19655689 (Version 1)
Quarter: 2021Q3

REPORT INFORMATION
  Report Type: Spontaneous
  Country: SG (occurrence: SG)
  Receive Date: 20210804
  Receipt Date: 20210804
  Transmission Date: 20211014
  Serious: Yes (Other)
  Sender: FDA-Public Use
  Company Number: SG-PFIZER INC-202100944718

PATIENT
  Age: 52 Year
  Sex: Male

DRUGS (2)
  1. LIPITOR [Suspect]
     Active Substance: ATORVASTATIN CALCIUM
     Dosage: 20 MG
     Dates: start: 202101
  2. EZETIBE [Concomitant]
     Dosage: 10 MG

REACTIONS (3)
  - Hepatic failure [Unknown]
  - Jaundice [Unknown]
  - Hepatotoxicity [Unknown]
